FAERS Safety Report 8311451-7 (Version None)
Quarter: 2012Q2

REPORT INFORMATION
  Report Type: 
  Country: None (occurrence: None)
  Receive Date: 20120423
  Receipt Date: 20120410
  Transmission Date: 20120825
  Serious: Yes (Disabling, Other)
  Sender: FDA-Public Use
  Company Number: ACO_30012_2012

PATIENT
  Age: 41 Year
  Sex: Female
  Weight: 88.4 kg

DRUGS (9)
  1. PRIMIDONE [Concomitant]
  2. ZANAFLEX [Concomitant]
  3. ZOLOFT [Concomitant]
  4. ATIVAN [Concomitant]
  5. BACLOFEN [Concomitant]
  6. LAMICTAL [Concomitant]
  7. WELLBUTRIN XL [Concomitant]
  8. AMPYRA [Suspect]
     Indication: GAIT DISTURBANCE
     Dosage: 10 MG, QD, ORAL
     Route: 048
     Dates: start: 20120328, end: 20120408
  9. METOPROLOL TARTRATE [Concomitant]

REACTIONS (7)
  - MUSCULOSKELETAL STIFFNESS [None]
  - INSOMNIA [None]
  - ABASIA [None]
  - JOINT STIFFNESS [None]
  - DRUG DOSE OMISSION [None]
  - PRURITUS [None]
  - INAPPROPRIATE SCHEDULE OF DRUG ADMINISTRATION [None]
